FAERS Safety Report 9565070 (Version 1)
Quarter: 2013Q3

REPORT INFORMATION
  Report Type: Spontaneous
  Country: US (occurrence: US)
  Receive Date: 20130930
  Receipt Date: 20130930
  Transmission Date: 20140515
  Serious: Yes (Hospitalization, Other)
  Sender: FDA-Public Use
  Company Number: US-ELI_LILLY_AND_COMPANY-US201309005438

PATIENT
  Age: 87 Year
  Sex: Female

DRUGS (11)
  1. HUMULIN 30% REGULAR, 70% NPH [Suspect]
     Indication: TYPE 2 DIABETES MELLITUS
     Dosage: UNK
  2. HUMULIN 30% REGULAR, 70% NPH [Suspect]
     Dosage: 10 U, EACH MORNING
  3. HUMULIN 30% REGULAR, 70% NPH [Suspect]
     Dosage: 10 U, EACH EVENING
  4. HUMULIN 30% REGULAR, 70% NPH [Suspect]
     Dosage: 20 U, EACH MORNING
  5. HUMULIN 30% REGULAR, 70% NPH [Suspect]
     Dosage: 18 U, EACH EVENING
  6. NOVOLOG [Concomitant]
  7. ASPIRIN [Concomitant]
     Dosage: UNK, QD
  8. ATENOLOL [Concomitant]
  9. LISINOPRIL [Concomitant]
  10. OXYBUTYNIN [Concomitant]
     Indication: BLADDER DISORDER
  11. ISOSORBIDE DINITRATE [Concomitant]
     Indication: BLOOD PRESSURE

REACTIONS (12)
  - Joint dislocation [Unknown]
  - Bowel movement irregularity [Recovered/Resolved]
  - Fall [Recovered/Resolved]
  - Thrombosis [Recovered/Resolved]
  - Heart rate increased [Unknown]
  - Hypotension [Unknown]
  - Somnolence [Unknown]
  - Feeling abnormal [Unknown]
  - Diarrhoea [Unknown]
  - Weight decreased [Unknown]
  - Dry skin [Unknown]
  - Lip swelling [Unknown]
